FAERS Safety Report 10213803 (Version 1)
Quarter: 2014Q2

REPORT INFORMATION
  Report Type: Spontaneous
  Country: US (occurrence: None)
  Receive Date: 20140602
  Receipt Date: 20140602
  Transmission Date: 20141212
  Serious: Yes (Disabling)
  Sender: FDA-Public Use
  Company Number: None

PATIENT
  Age: 44 Year
  Sex: Female
  Weight: 130.64 kg

DRUGS (1)
  1. FLOVENT [Suspect]
     Indication: ASTHMA
     Dosage: ONE PUFF 2 TIMES DAY TWICE DAILY INHALATION
     Route: 055
     Dates: start: 20140425, end: 20140518

REACTIONS (10)
  - Muscular weakness [None]
  - Withdrawal syndrome [None]
  - Joint stiffness [None]
  - Inflammation [None]
  - Feeling hot [None]
  - Arthralgia [None]
  - Arthralgia [None]
  - Joint crepitation [None]
  - Gait disturbance [None]
  - Arthritis [None]
